FAERS Safety Report 22237004 (Version 1)
Quarter: 2023Q2

REPORT INFORMATION
  Report Type: Report from Study
  Country: CO (occurrence: CO)
  Receive Date: 20230421
  Receipt Date: 20230421
  Transmission Date: 20230721
  Serious: Yes (Hospitalization)
  Sender: FDA-Public Use
  Company Number: CO-ABBVIE-4735489

PATIENT
  Sex: Female
  Weight: 57 kg

DRUGS (1)
  1. SKYRIZI [Suspect]
     Active Substance: RISANKIZUMAB-RZAA
     Indication: Psoriasis
     Route: 058
     Dates: start: 20210628

REACTIONS (10)
  - Fatigue [Recovering/Resolving]
  - Hypoaesthesia [Unknown]
  - Tachycardia [Not Recovered/Not Resolved]
  - Crying [Recovering/Resolving]
  - Depression [Recovering/Resolving]
  - Mobility decreased [Recovering/Resolving]
  - Aphasia [Recovering/Resolving]
  - Blood pressure decreased [Recovering/Resolving]
  - Headache [Recovering/Resolving]
  - Tremor [Unknown]
